FAERS Safety Report 19715115 (Version 2)
Quarter: 2021Q3

REPORT INFORMATION
  Report Type: Report from Study
  Country: CN (occurrence: CN)
  Receive Date: 20210818
  Receipt Date: 20210825
  Transmission Date: 20211014
  Serious: Yes (Hospitalization)
  Sender: FDA-Public Use
  Company Number: CN-ROCHE-2854378

PATIENT
  Age: 65 Year
  Sex: Male
  Weight: 48.8 kg

DRUGS (9)
  1. PALONOSETRON HYDROCHLORIDE. [Concomitant]
     Active Substance: PALONOSETRON HYDROCHLORIDE
     Dates: start: 20210618, end: 20210618
  2. APREPITANT. [Concomitant]
     Active Substance: APREPITANT
     Dates: start: 20210618, end: 20210620
  3. DEXAMETHASONE SODIUM PHOSPHATE. [Concomitant]
     Active Substance: DEXAMETHASONE SODIUM PHOSPHATE
     Route: 042
     Dates: start: 20210618, end: 20210618
  4. ATEZOLIZUMAB. [Suspect]
     Active Substance: ATEZOLIZUMAB
     Indication: OESOPHAGEAL CARCINOMA
     Dosage: ON 18/JUN/2021, THE PATIENT RECEIVED THE MOST RECENT DOSE OF ATEZOLIZUMAB PRIOR TO AE/SAE.
     Route: 042
     Dates: start: 20210618
  5. PACLITAXEL. [Suspect]
     Active Substance: PACLITAXEL
     Indication: OESOPHAGEAL CARCINOMA
     Dosage: ON 18/JUN/2021, RECEIVED THE MOST RECENT DOSE (30.78 MG) OF PACLITAXEL PRIOR TO SERIOUS ADVERSE EVEN
     Route: 042
     Dates: start: 20210618
  6. HYDROXYETHYL STARCH;SODIUM CHLORIDE [Concomitant]
     Dates: start: 20210618, end: 20210618
  7. TIRAGOLUMAB. [Suspect]
     Active Substance: TIRAGOLUMAB
     Indication: OESOPHAGEAL CARCINOMA
     Dosage: ON 18/JUN/2021, THE PATIENT RECEIVED THE MOST RECENT DOSE OF TIRAGOLUMAB PRIOR TO AE/SAE.
     Route: 042
     Dates: start: 20210618
  8. CIMETIDINE [Concomitant]
     Active Substance: CIMETIDINE
     Dates: start: 20210618, end: 20210618
  9. NOREPINEPHRINE BITARTRATE. [Concomitant]
     Active Substance: NOREPINEPHRINE BITARTRATE
     Indication: HEART RATE DECREASED
     Route: 042
     Dates: start: 20210618, end: 20210619

REACTIONS (2)
  - Heart rate decreased [Recovered/Resolved]
  - Infusion related reaction [Recovered/Resolved]

NARRATIVE: CASE EVENT DATE: 20210618
